FAERS Safety Report 5895573-6 (Version None)
Quarter: 2008Q3

REPORT INFORMATION
  Report Type: 
  Country: None (occurrence: None)
  Receive Date: 20080924
  Receipt Date: 20080320
  Transmission Date: 20090109
  Serious: Yes (Other)
  Sender: FDA-Public Use
  Company Number: US-ASTRAZENECA-2006UW08023

PATIENT
  Age: 13497 Day
  Sex: Female
  Weight: 48.5 kg

DRUGS (7)
  1. SEROQUEL [Suspect]
     Indication: SCHIZOPHRENIA
     Dosage: 200-300MG
     Route: 048
     Dates: start: 19990101, end: 20060101
  2. SEROQUEL [Suspect]
     Indication: BIPOLAR DISORDER
     Dosage: 200-300MG
     Route: 048
     Dates: start: 19990101, end: 20060101
  3. SEROQUEL [Suspect]
     Indication: DEPRESSION
     Dosage: 200-300MG
     Route: 048
     Dates: start: 19990101, end: 20060101
  4. SEROQUEL [Suspect]
     Route: 048
     Dates: start: 20070101
  5. SEROQUEL [Suspect]
     Route: 048
     Dates: start: 20070101
  6. SEROQUEL [Suspect]
     Route: 048
     Dates: start: 20070101
  7. ATIVAN [Concomitant]

REACTIONS (1)
  - PANCREATITIS [None]
